FAERS Safety Report 12982207 (Version 5)
Quarter: 2020Q4

REPORT INFORMATION
  Report Type: Spontaneous
  Country: US (occurrence: US)
  Receive Date: 20161129
  Receipt Date: 20201008
  Transmission Date: 20210113
  Serious: No
  Sender: FDA-Public Use
  Company Number: US-PFIZER INC-2016543365

PATIENT
  Age: 68 Year
  Sex: Female
  Weight: 97.5 kg

DRUGS (1)
  1. INLYTA [Suspect]
     Active Substance: AXITINIB
     Indication: METASTATIC RENAL CELL CARCINOMA
     Dosage: 5 MG, 2X/DAY (AROUND 10 IN THE MORNING AND AROUND 10 AT NIGHT)
     Route: 048
     Dates: start: 201410

REACTIONS (2)
  - Plantar fasciitis [Unknown]
  - Pain in extremity [Recovering/Resolving]

NARRATIVE: CASE EVENT DATE: 20161117
